FAERS Safety Report 6743859-5 (Version None)
Quarter: 2010Q2

REPORT INFORMATION
  Report Type: 
  Country: None (occurrence: None)
  Receive Date: 20100527
  Receipt Date: 20100204
  Transmission Date: 20101027
  Serious: No
  Sender: FDA-Public Use
  Company Number: US-KINGPHARMUSA00001-K201000136

PATIENT
  Sex: Female
  Weight: 105.22 kg

DRUGS (4)
  1. FLECTOR [Suspect]
     Indication: BACK PAIN
     Dosage: 1 PATCH, Q12H, PRN
     Route: 061
     Dates: start: 20091101, end: 20091101
  2. FLECTOR [Suspect]
     Indication: PAIN IN EXTREMITY
  3. FLEXERIL [Concomitant]
     Indication: MUSCLE SPASMS
     Dosage: 10 MG, QHS, PRN
     Route: 048
  4. ANALGESICS [Concomitant]

REACTIONS (2)
  - RENAL DISORDER [None]
  - RENAL PAIN [None]
